FAERS Safety Report 23253083 (Version 1)
Quarter: 2023Q4

REPORT INFORMATION
  Report Type: Spontaneous
  Country: CN (occurrence: None)
  Receive Date: 20231201
  Receipt Date: 20231201
  Transmission Date: 20240110
  Serious: Yes (Hospitalization)
  Sender: FDA-Public Use
  Company Number: CN-ROCHE-3467385

PATIENT
  Age: 61 Year
  Sex: Female
  Weight: 59 kg

DRUGS (9)
  1. CARBOPLATIN [Suspect]
     Active Substance: CARBOPLATIN
     Indication: Ovarian cancer
     Route: 041
     Dates: start: 20230907
  2. CARBOPLATIN [Suspect]
     Active Substance: CARBOPLATIN
     Indication: Fallopian tube cancer
  3. PACLITAXEL [Suspect]
     Active Substance: PACLITAXEL
     Indication: Fallopian tube cancer
     Route: 041
     Dates: start: 20230907
  4. PACLITAXEL [Suspect]
     Active Substance: PACLITAXEL
     Indication: Ovarian cancer
  5. AVASTIN [Suspect]
     Active Substance: BEVACIZUMAB
     Indication: Fallopian tube cancer
     Route: 041
     Dates: start: 20230907
  6. AVASTIN [Suspect]
     Active Substance: BEVACIZUMAB
     Indication: Ovarian cancer
  7. SODIUM CHLORIDE [Concomitant]
     Active Substance: SODIUM CHLORIDE
     Route: 041
     Dates: start: 20230907
  8. SODIUM CHLORIDE [Concomitant]
     Active Substance: SODIUM CHLORIDE
     Route: 041
     Dates: start: 20230907
  9. DEXTROSE [Concomitant]
     Active Substance: DEXTROSE\DEXTROSE MONOHYDRATE
     Route: 042
     Dates: start: 20230907

REACTIONS (1)
  - Myelosuppression [Recovering/Resolving]

NARRATIVE: CASE EVENT DATE: 20231117
